FAERS Safety Report 9604831 (Version 2)
Quarter: 2013Q4

REPORT INFORMATION
  Report Type: Spontaneous
  Country: US (occurrence: US)
  Receive Date: 20131008
  Receipt Date: 20131008
  Transmission Date: 20140711
  Serious: No
  Sender: FDA-Public Use
  Company Number: US-BAXTER-2013BAX011075

PATIENT
  Age: 62 Year
  Sex: Male

DRUGS (5)
  1. DIANEAL LOW CALCIUM [Suspect]
     Indication: PERITONEAL DIALYSIS
     Route: 033
     Dates: start: 2011, end: 20130314
  2. DIANEAL LOW CALCIUM [Suspect]
     Route: 033
     Dates: start: 20130321
  3. DIANEAL LOW CALCIUM [Suspect]
     Indication: PERITONEAL DIALYSIS
     Route: 033
     Dates: start: 2011, end: 20130314
  4. DIANEAL LOW CALCIUM [Suspect]
     Route: 033
     Dates: start: 20130321
  5. EXTRANEAL [Suspect]
     Indication: PERITONEAL DIALYSIS
     Route: 033
     Dates: start: 20130314, end: 20130321

REACTIONS (6)
  - Rash erythematous [Recovering/Resolving]
  - Urticaria [Recovering/Resolving]
  - Rash generalised [Recovered/Resolved]
  - Rash pruritic [Recovered/Resolved]
  - Rash erythematous [Recovered/Resolved]
  - Urticaria [Recovering/Resolving]
